FAERS Safety Report 14703544 (Version 2)
Quarter: 2018Q2

REPORT INFORMATION
  Report Type: Spontaneous
  Country: US (occurrence: US)
  Receive Date: 20180402
  Receipt Date: 20180425
  Transmission Date: 20180711
  Serious: Yes (Other)
  Sender: FDA-Public Use
  Company Number: US-009507513-1804USA000182

PATIENT
  Age: 27 Year
  Sex: Female

DRUGS (5)
  1. VANCOMYCIN [Suspect]
     Active Substance: VANCOMYCIN
     Indication: STAPHYLOCOCCAL INFECTION
     Dosage: 1000 MG, Q8H
     Route: 042
  2. VANCOMYCIN [Suspect]
     Active Substance: VANCOMYCIN
     Dosage: 1000 MG Q6H
     Route: 042
  3. DALBAVANCIN. [Suspect]
     Active Substance: DALBAVANCIN
     Dosage: 500 MG, ON DAYS 34,46 AND 53
  4. CUBICIN [Suspect]
     Active Substance: DAPTOMYCIN
     Dosage: 10 MG/KG/D, ON DAY 5
     Route: 065
  5. DALBAVANCIN. [Suspect]
     Active Substance: DALBAVANCIN
     Indication: STAPHYLOCOCCAL INFECTION
     Dosage: 1000 MG, LOADING DOSE

REACTIONS (3)
  - Pathogen resistance [Unknown]
  - Drug administration error [Unknown]
  - Exposure during pregnancy [Recovered/Resolved]
